FAERS Safety Report 24011928 (Version 1)
Quarter: 2024Q2

REPORT INFORMATION
  Report Type: Spontaneous
  Country: US (occurrence: US)
  Receive Date: 20240625
  Receipt Date: 20240625
  Transmission Date: 20240716
  Serious: No
  Sender: FDA-Public Use
  Company Number: US-SA-SAC20240617000293

PATIENT
  Sex: Male

DRUGS (2)
  1. ELOCTATE [Suspect]
     Active Substance: EFMOROCTOCOG ALFA
     Indication: Factor VIII deficiency
     Dosage: 3000 IU 2 TO 3 TIMES PER WEEK ALTERNATING ONE WEEK MONDAYS AND THURSDAYS AND OTHER WEEK MONDAYS, WED
     Route: 042
     Dates: start: 201903
  2. ELOCTATE [Suspect]
     Active Substance: EFMOROCTOCOG ALFA
     Indication: Factor VIII deficiency
     Dosage: 3000 IU 2 TO 3 TIMES PER WEEK ALTERNATING ONE WEEK MONDAYS AND THURSDAYS AND OTHER WEEK MONDAYS, WED
     Route: 042
     Dates: start: 201903

REACTIONS (1)
  - Haemorrhage [Recovered/Resolved]
